FAERS Safety Report 7344858-5 (Version None)
Quarter: 2011Q1

REPORT INFORMATION
  Report Type: 
  Country: None (occurrence: None)
  Receive Date: 20110310
  Receipt Date: 20110305
  Transmission Date: 20110831
  Serious: Yes (Death, Other)
  Sender: FDA-Public Use
  Company Number: JP-CEPHALON-2011001096

PATIENT
  Age: 69 Year
  Sex: Female

DRUGS (1)
  1. BENDAMUSTINE HCL [Suspect]
     Indication: NON-HODGKIN'S LYMPHOMA RECURRENT
     Route: 042
     Dates: start: 20110128, end: 20110129

REACTIONS (3)
  - PYREXIA [None]
  - NON-HODGKIN'S LYMPHOMA RECURRENT [None]
  - CYSTITIS HAEMORRHAGIC [None]
